FAERS Safety Report 24985663 (Version 1)
Quarter: 2025Q1

REPORT INFORMATION
  Report Type: Spontaneous
  Country: US (occurrence: US)
  Receive Date: 20250219
  Receipt Date: 20250219
  Transmission Date: 20250408
  Serious: No
  Sender: ABBVIE
  Company Number: US-ABBVIE-6137405

PATIENT
  Sex: Male

DRUGS (2)
  1. BOTOX [Suspect]
     Active Substance: ONABOTULINUMTOXINA
     Indication: Periorbital swelling
     Route: 065
     Dates: start: 20250121, end: 20250121
  2. DYSPORT [Suspect]
     Active Substance: ABOBOTULINUMTOXINA
     Indication: Product used for unknown indication
     Dates: start: 20250121

REACTIONS (4)
  - Eye contusion [Unknown]
  - Eye swelling [Unknown]
  - Swelling face [Unknown]
  - Facial paresis [Unknown]

NARRATIVE: CASE EVENT DATE: 20250122
